FAERS Safety Report 20064668 (Version 1)
Quarter: 2021Q4

REPORT INFORMATION
  Report Type: Spontaneous
  Country: CN (occurrence: CN)
  Receive Date: 20211112
  Receipt Date: 20211112
  Transmission Date: 20220304
  Serious: Yes (Hospitalization)
  Sender: FDA-Public Use
  Company Number: CN-GE HEALTHCARE-2021CSU005623

PATIENT

DRUGS (2)
  1. OMNIPAQUE [Suspect]
     Active Substance: IOHEXOL
     Indication: Interventional procedure
     Dosage: UNK UNK, SINGLE
     Route: 040
     Dates: start: 20211026, end: 20211026
  2. OMNIPAQUE [Suspect]
     Active Substance: IOHEXOL
     Indication: Hepatic cancer

REACTIONS (10)
  - Tongue dry [Recovering/Resolving]
  - Dry mouth [Recovering/Resolving]
  - Laryngeal oedema [Recovering/Resolving]
  - Chest discomfort [Recovering/Resolving]
  - Dyspnoea [Recovering/Resolving]
  - Conjunctival hyperaemia [Recovering/Resolving]
  - Erythema [Recovering/Resolving]
  - Aphasia [Recovering/Resolving]
  - Larynx irritation [Recovering/Resolving]
  - Cough [Recovering/Resolving]

NARRATIVE: CASE EVENT DATE: 20211026
